FAERS Safety Report 10402035 (Version 1)
Quarter: 2014Q3

REPORT INFORMATION
  Report Type: Spontaneous
  Country: RS (occurrence: RS)
  Receive Date: 20140822
  Receipt Date: 20140822
  Transmission Date: 20150326
  Serious: Yes (Other)
  Sender: FDA-Public Use
  Company Number: RS-NOVOPROD-419991

PATIENT
  Age: 15 Year
  Sex: Male
  Weight: 61 kg

DRUGS (5)
  1. NORDITROPIN [Suspect]
     Active Substance: SOMATROPIN
     Indication: HYPOPITUITARISM
     Dosage: 1.6 MG, QD
     Route: 058
     Dates: start: 20110811, end: 20140506
  2. EUTHYROX [Concomitant]
     Active Substance: LEVOTHYROXINE SODIUM
     Indication: HYPOPITUITARISM
     Dosage: 75 MG, QD
     Route: 048
     Dates: start: 20030122
  3. MINIRIN [Concomitant]
     Active Substance: DESMOPRESSIN ACETATE
     Indication: DIABETES INSIPIDUS
     Dosage: 2 DOSES/DAY
     Route: 045
     Dates: start: 20030122
  4. TESTOSTERONE. [Concomitant]
     Active Substance: TESTOSTERONE
     Indication: HYPOPITUITARISM
     Dosage: UNK
     Route: 065
     Dates: start: 20030122
  5. HYDROCORTISON                      /00028601/ [Concomitant]
     Active Substance: HYDROCORTISONE
     Indication: HYPOPITUITARISM
     Dosage: 15 MG, QD
     Route: 048
     Dates: start: 20030122

REACTIONS (1)
  - Astrocytoma [Unknown]

NARRATIVE: CASE EVENT DATE: 20140411
